FAERS Safety Report 15590634 (Version 1)
Quarter: 2018Q4

REPORT INFORMATION
  Report Type: Spontaneous
  Country: US (occurrence: US)
  Receive Date: 20181106
  Receipt Date: 20181106
  Transmission Date: 20190205
  Serious: Yes (Other)
  Sender: FDA-Public Use
  Company Number: US-BAYER-2018-200261

PATIENT
  Age: 63 Year
  Sex: Female

DRUGS (1)
  1. CIPRO [Suspect]
     Active Substance: CIPROFLOXACIN HYDROCHLORIDE
     Indication: GASTRIC DISORDER
     Dosage: 500 MG, BID
     Dates: start: 20180619, end: 20180626

REACTIONS (4)
  - Tendon disorder [Recovered/Resolved]
  - Gastrointestinal disorder [Recovered/Resolved]
  - Nervous system disorder [Recovered/Resolved]
  - Gait disturbance [None]

NARRATIVE: CASE EVENT DATE: 201806
